FAERS Safety Report 7463121-5 (Version None)
Quarter: 2011Q2

REPORT INFORMATION
  Report Type: 
  Country: None (occurrence: None)
  Receive Date: 20110428
  Receipt Date: 20110412
  Transmission Date: 20111010
  Serious: Yes (Hospitalization)
  Sender: FDA-Public Use
  Company Number: JPI-P-014597

PATIENT
  Age: 43 Year
  Sex: Female

DRUGS (2)
  1. XYREM [Suspect]
     Indication: FIBROMYALGIA
     Dosage: SEE IMAGE
     Route: 048
     Dates: start: 20100601
  2. XYREM [Suspect]
     Indication: FIBROMYALGIA
     Dosage: SEE IMAGE
     Route: 048
     Dates: start: 20080604

REACTIONS (4)
  - INSOMNIA [None]
  - HALLUCINATION [None]
  - MENTAL DISORDER [None]
  - FATIGUE [None]
